FAERS Safety Report 8537639-8 (Version None)
Quarter: 2012Q3

REPORT INFORMATION
  Report Type: 
  Country: None (occurrence: None)
  Receive Date: 20120725
  Receipt Date: 20120628
  Transmission Date: 20120928
  Serious: Yes (Other)
  Sender: FDA-Public Use
  Company Number: IT-BAYER-2012-052139

PATIENT
  Age: 80 Year
  Sex: Female
  Weight: 68 kg

DRUGS (31)
  1. BLINDED SORAFENIB (RAF KINASE INHIBITOR) [Suspect]
     Dosage: 400 MG, BID
     Route: 048
     Dates: start: 20110627, end: 20110816
  2. SORAFENIB (RAF KINASE INHIBITOR) [Suspect]
     Dosage: 400 MG, BID
     Route: 048
     Dates: start: 20120110, end: 20120130
  3. BLINDED SORAFENIB (RAF KINASE INHIBITOR) [Suspect]
     Dosage: 400 MG, BID
     Route: 048
     Dates: start: 20110817, end: 20110925
  4. SORAFENIB (RAF KINASE INHIBITOR) [Suspect]
     Dosage: 400 MG, BID
     Route: 048
     Dates: start: 20120223, end: 20120305
  5. SORAFENIB (RAF KINASE INHIBITOR) [Suspect]
     Dosage: 600 MG, QD, CYCLE 20
     Route: 048
     Dates: start: 20120430
  6. DOXAZOSIN MESYLATE [Concomitant]
     Indication: HYPERTENSION
     Dosage: DAILY DOSE 2 MG
     Route: 048
     Dates: start: 20080101
  7. LEVOTHYROXINE SODIUM [Concomitant]
     Dosage: DAILY DOSE 100 ?G
     Route: 048
     Dates: start: 20110521, end: 20111102
  8. AUGMENTIN '500' [Concomitant]
     Indication: BREAST MASS
     Dosage: DAILY DOSE 1000 MG
     Dates: start: 20120216, end: 20120222
  9. BLINDED SORAFENIB (RAF KINASE INHIBITOR) [Suspect]
     Dosage: 400 MG, BID
     Route: 048
     Dates: start: 20110512, end: 20110602
  10. BLINDED SORAFENIB (RAF KINASE INHIBITOR) [Suspect]
     Dosage: 400 MG, BID
     Route: 048
     Dates: start: 20110603, end: 20110626
  11. SORAFENIB (RAF KINASE INHIBITOR) [Suspect]
     Dosage: 400 MG, BID
     Route: 048
     Dates: start: 20111216, end: 20120109
  12. LEVOTHYROXINE SODIUM [Concomitant]
     Dosage: DAILY DOSE 100 ?G
     Route: 048
     Dates: start: 20111218, end: 20120110
  13. IMODIUM [Concomitant]
     Indication: DIARRHOEA
     Dosage: DAILY DOSE 2 MG
     Route: 048
     Dates: start: 20120415
  14. SORAFENIB (RAF KINASE INHIBITOR) [Suspect]
     Indication: THYROID CANCER
     Dosage: 400 MG, BID
     Route: 048
     Dates: start: 20111029, end: 20111113
  15. SORAFENIB (RAF KINASE INHIBITOR) [Suspect]
     Dosage: 600 MG, QD, CYCLE 19
     Route: 048
     Dates: start: 20120411, end: 20120429
  16. BLINDED SORAFENIB (RAF KINASE INHIBITOR) [Suspect]
     Dosage: 400 MG, BID
     Route: 048
     Dates: start: 20101221, end: 20110110
  17. SORAFENIB (RAF KINASE INHIBITOR) [Suspect]
     Dosage: 400 MG, BID
     Route: 048
     Dates: start: 20111114, end: 20111215
  18. LEVOTHYROXINE SODIUM [Concomitant]
     Indication: POST PROCEDURAL HYPOTHYROIDISM
     Dosage: DAILY DOSE 125 ?G
     Route: 048
     Dates: start: 20061223, end: 20101222
  19. LEVOTHYROXINE SODIUM [Concomitant]
     Indication: BLOOD THYROID STIMULATING HORMONE INCREASED
     Dosage: DAILY DOSE 112.5 ?G
     Route: 048
     Dates: start: 20101223, end: 20110520
  20. BLINDED SORAFENIB (RAF KINASE INHIBITOR) [Suspect]
     Indication: THYROID CANCER
     Dosage: 400 MG, BID
     Route: 048
     Dates: start: 20101119, end: 20101220
  21. BLINDED SORAFENIB (RAF KINASE INHIBITOR) [Suspect]
     Dosage: 400 MG, BID
     Route: 048
     Dates: start: 20110408, end: 20110511
  22. BLINDED SORAFENIB (RAF KINASE INHIBITOR) [Suspect]
     Dosage: 400 MG, BID
     Route: 048
     Dates: start: 20110926, end: 20111023
  23. BLINDED SORAFENIB (RAF KINASE INHIBITOR) [Suspect]
     Dosage: 400 MG, BID
     Route: 048
     Dates: start: 20110111, end: 20110209
  24. SORAFENIB (RAF KINASE INHIBITOR) [Suspect]
     Dosage: 600 MG, QD, CYCLE 18
     Route: 048
     Dates: start: 20120308, end: 20120410
  25. LEVOTHYROXINE SODIUM [Concomitant]
     Dosage: DAILY DOSE 75 ?G
     Route: 048
     Dates: start: 20111103, end: 20111217
  26. LEVOTHYROXINE SODIUM [Concomitant]
     Dosage: DAILY DOSE 112.5 ?G
     Route: 048
     Dates: start: 20120111, end: 20120412
  27. LEVOTHYROXINE SODIUM [Concomitant]
     Dosage: DAILY DOSE 112.5 ?G
     Route: 048
     Dates: start: 20120413
  28. SELEPARINA [Concomitant]
     Indication: BREAST MASS
     Dosage: DAILY DOSE .4 ML
     Dates: start: 20120207, end: 20120221
  29. BLINDED SORAFENIB (RAF KINASE INHIBITOR) [Suspect]
     Dosage: 400 MG, BID
     Route: 048
     Dates: start: 20110210, end: 20110310
  30. BLINDED SORAFENIB (RAF KINASE INHIBITOR) [Suspect]
     Dosage: 400 MG, BID
     Route: 048
     Dates: start: 20110311, end: 20110407
  31. SORAFENIB (RAF KINASE INHIBITOR) [Suspect]
     Dosage: 600 MG, QD
     Route: 048
     Dates: start: 20120306, end: 20120307

REACTIONS (1)
  - BLADDER NEOPLASM [None]
